FAERS Safety Report 20134693 (Version 2)
Quarter: 2022Q1

REPORT INFORMATION
  Report Type: Report from Study
  Country: CA (occurrence: CA)
  Receive Date: 20211201
  Receipt Date: 20220321
  Transmission Date: 20220423
  Serious: Yes (Death, Hospitalization, Other)
  Sender: FDA-Public Use
  Company Number: CA-ASTELLAS-2021US045840

PATIENT
  Age: 74 Year
  Sex: Male

DRUGS (3)
  1. ENZALUTAMIDE [Suspect]
     Active Substance: ENZALUTAMIDE
     Indication: Product used for unknown indication
     Dosage: UNK UNK, UNKNOWN FREQ.
     Route: 065
  2. ELIGARD [Suspect]
     Active Substance: LEUPROLIDE ACETATE
     Indication: Prostate cancer
     Dosage: 30 MG, OTHER (1 EVERY 4 MONTHS)
     Route: 058
  3. ELIGARD [Suspect]
     Active Substance: LEUPROLIDE ACETATE
     Dosage: UNK UNK, OTHER (1 EVERY 4 MONTHS)
     Route: 058

REACTIONS (13)
  - Death [Fatal]
  - Ageusia [Unknown]
  - Constipation [Unknown]
  - Decreased appetite [Unknown]
  - Haematuria [Unknown]
  - Haemorrhage urinary tract [Unknown]
  - Hot flush [Unknown]
  - Injection site mass [Unknown]
  - Injection site pain [Unknown]
  - Nocturia [Unknown]
  - Pollakiuria [Unknown]
  - Pruritus [Unknown]
  - Weight decreased [Unknown]
